FAERS Safety Report 9283163 (Version 1)
Quarter: 2013Q2

REPORT INFORMATION
  Report Type: Spontaneous
  Country: US (occurrence: US)
  Receive Date: 20130510
  Receipt Date: 20130510
  Transmission Date: 20140414
  Serious: No
  Sender: FDA-Public Use
  Company Number: US-GLAXOSMITHKLINE-A0983793A

PATIENT
  Age: 66 Year
  Sex: Female

DRUGS (6)
  1. TYKERB [Suspect]
     Dosage: 1250MG PER DAY
     Route: 065
  2. EXEMESTANE [Concomitant]
  3. SIMVASTATIN [Concomitant]
  4. LEVOTHYROXIN [Concomitant]
  5. VITAMIN D [Concomitant]
  6. CALCIUM + VITAMIN D [Concomitant]

REACTIONS (1)
  - Epistaxis [Unknown]
